FAERS Safety Report 13423694 (Version 2)
Quarter: 2017Q2

REPORT INFORMATION
  Report Type: Spontaneous
  Country: RU (occurrence: RU)
  Receive Date: 20170410
  Receipt Date: 20170411
  Transmission Date: 20170830
  Serious: Yes (Death)
  Sender: FDA-Public Use
  Company Number: RU-SA-2017SA057644

PATIENT
  Sex: Male

DRUGS (1)
  1. CEREZYME [Suspect]
     Active Substance: IMIGLUCERASE
     Route: 042
     Dates: end: 20170316

REACTIONS (1)
  - Sepsis [Fatal]
